FAERS Safety Report 8252601-0 (Version None)
Quarter: 2012Q2

REPORT INFORMATION
  Report Type: 
  Country: None (occurrence: None)
  Receive Date: 20120402
  Receipt Date: 20120323
  Transmission Date: 20120825
  Serious: Yes (Other)
  Sender: FDA-Public Use
  Company Number: FR-BAXTER-2012BAX001558

PATIENT
  Sex: 0

DRUGS (2)
  1. CYCLOPHOSPHAMIDE [Suspect]
  2. FLUDARABINE PHOSPHATE [Suspect]

REACTIONS (1)
  - RENAL CANCER [None]
